FAERS Safety Report 17665746 (Version 1)
Quarter: 2020Q2

REPORT INFORMATION
  Report Type: Spontaneous
  Country: KR (occurrence: KR)
  Receive Date: 20200414
  Receipt Date: 20200414
  Transmission Date: 20200713
  Serious: Yes (Death, Other)
  Sender: FDA-Public Use
  Company Number: KR-PFIZER INC-2020147862

PATIENT
  Age: 53 Year
  Sex: Female

DRUGS (3)
  1. CICLOSPORINE [Suspect]
     Active Substance: CYCLOSPORINE
     Indication: UVEITIS
     Dosage: UNK
  2. METHYLPREDNISOLONE ACETATE. [Suspect]
     Active Substance: METHYLPREDNISOLONE ACETATE
     Indication: NEUROMYELITIS OPTICA SPECTRUM DISORDER
     Dosage: UNK (HIGH-DOSE)
     Route: 042
  3. PREDNISOLONE. [Suspect]
     Active Substance: PREDNISOLONE
     Indication: NEUROMYELITIS OPTICA SPECTRUM DISORDER
     Dosage: UNK
     Route: 048

REACTIONS (1)
  - Diffuse large B-cell lymphoma [Fatal]
